FAERS Safety Report 15328238 (Version 2)
Quarter: 2018Q4

REPORT INFORMATION
  Report Type: Spontaneous
  Country: TT (occurrence: TT)
  Receive Date: 20180829
  Receipt Date: 20180924
  Transmission Date: 20190204
  Serious: Yes (Hospitalization, Other)
  Sender: FDA-Public Use
  Company Number: TT-JNJFOC-20180725307

PATIENT
  Age: 5 Month
  Sex: Male

DRUGS (8)
  1. JOHNSON^S BABY SHAMPOO [Concomitant]
     Indication: PRODUCT USED FOR UNKNOWN INDICATION
     Dosage: ONE TIME PER DAY
     Route: 065
  2. JOHNSONS BABY BODY WASH UNSPECIFIED [Suspect]
     Active Substance: COSMETICS
     Indication: REMOVAL OF INERT MATTER FROM SKIN OR SUBCUTANEOUS TISSUE
     Dosage: ONE TIME PER DAY
     Route: 061
     Dates: start: 20180301, end: 20180516
  3. JOHNSONS BABY LOTION [Suspect]
     Active Substance: COSMETICS
     Indication: PRODUCT USED FOR UNKNOWN INDICATION
     Route: 061
     Dates: start: 20180301, end: 20180516
  4. JOHNSON^S BEDTIME BABY LOTION [Concomitant]
     Indication: PRODUCT USED FOR UNKNOWN INDICATION
     Dosage: ONE TIME PER DAY
     Route: 061
  5. JOHNSON^S BABY BAR [Concomitant]
     Indication: PRODUCT USED FOR UNKNOWN INDICATION
     Dosage: ONE TIME PER DAY
     Route: 061
  6. JBABY BABY POWDER UNSPECIFIED (ZINC OXIDE) [Suspect]
     Active Substance: ZINC OXIDE
     Indication: PRODUCT USED FOR UNKNOWN INDICATION
     Route: 061
     Dates: start: 20180301, end: 20180516
  7. JOHNSON^S HONEY APPLE LOTION [Concomitant]
     Indication: PRODUCT USED FOR UNKNOWN INDICATION
     Dosage: ONE TIME PER DAY
     Route: 061
  8. JOHNSON^S MEDICATED BABY POWDER WITH ZINC OXIDE [Concomitant]
     Indication: PRODUCT USED FOR UNKNOWN INDICATION
     Dosage: ONE TIME PER DAY
     Route: 061

REACTIONS (1)
  - Application site reaction [Recovered/Resolved]

NARRATIVE: CASE EVENT DATE: 20180303
